FAERS Safety Report 22943503 (Version 3)
Quarter: 2023Q4

REPORT INFORMATION
  Report Type: Spontaneous
  Country: CZ (occurrence: CZ)
  Receive Date: 20230914
  Receipt Date: 20231122
  Transmission Date: 20240109
  Serious: Yes (Other)
  Sender: FDA-Public Use
  Company Number: CZ-Zentiva-2023-ZT-012745

PATIENT
  Age: 37 Year
  Sex: Female

DRUGS (12)
  1. AZACITIDINE [Suspect]
     Active Substance: AZACITIDINE
     Indication: Acute myeloid leukaemia
     Dosage: 4TH CYCLE
     Route: 065
  2. AZACITIDINE [Suspect]
     Active Substance: AZACITIDINE
     Dosage: 75MG/M2 OF BODYSURFACE(ONDAY1-7 OF EACH28DAYCYCLE)
     Route: 065
     Dates: start: 202210
  3. AZACITIDINE [Suspect]
     Active Substance: AZACITIDINE
     Dosage: OUTPATIENT BASIS
     Route: 065
  4. AZACITIDINE [Suspect]
     Active Substance: AZACITIDINE
     Dosage: COMPLETED A TOTAL OF 6 CYCLES VEN, AZA THERAPY
     Route: 065
     Dates: end: 202303
  5. AZACITIDINE [Suspect]
     Active Substance: AZACITIDINE
     Dosage: 10 CYCLES
     Route: 065
     Dates: start: 201901, end: 201911
  6. VENETOCLAX [Suspect]
     Active Substance: VENETOCLAX
     Indication: Acute myeloid leukaemia
     Dosage: UNK, CYCLIC (4TH CYCLE)
     Route: 065
  7. VENETOCLAX [Suspect]
     Active Substance: VENETOCLAX
     Dosage: UNK (DOSE INCREASED)
     Route: 065
  8. VENETOCLAX [Suspect]
     Active Substance: VENETOCLAX
     Dosage: 400 MG, QD (28-DAY CYCLE (VEN PLUS AZA)
     Route: 065
     Dates: start: 202210
  9. VENETOCLAX [Suspect]
     Active Substance: VENETOCLAX
     Dosage: 100 MG, QD (FROM 5TH CYCLE ONWARD, DOSE REDUCED)
     Route: 065
  10. VENETOCLAX [Suspect]
     Active Substance: VENETOCLAX
     Dosage: UNK (OUTPATIENT BASIS)
     Route: 065
  11. VORICONAZOLE [Concomitant]
     Active Substance: VORICONAZOLE
     Indication: Antifungal prophylaxis
     Dosage: UNK
     Route: 065
  12. POSACONAZOLE [Concomitant]
     Active Substance: POSACONAZOLE
     Indication: Antifungal prophylaxis
     Dosage: UNK
     Route: 065

REACTIONS (4)
  - Acute myeloid leukaemia [Unknown]
  - Tumour lysis syndrome [Unknown]
  - Cytopenia [Recovered/Resolved]
  - Respiratory tract infection [Unknown]

NARRATIVE: CASE EVENT DATE: 20190101
